FAERS Safety Report 9994711 (Version 1)
Quarter: 2014Q1

REPORT INFORMATION
  Report Type: Spontaneous
  Country: US (occurrence: None)
  Receive Date: 20140306
  Receipt Date: 20140306
  Transmission Date: 20141002
  Serious: Yes (Other)
  Sender: FDA-Public Use
  Company Number: A1063518A

PATIENT
  Age: 84 Year
  Sex: Male

DRUGS (2)
  1. METHYLCELLULOSE [Suspect]
     Indication: CONSTIPATION
     Route: 048
  2. POLYETHYLENE GLYCOL [Suspect]
     Indication: CONSTIPATION
     Dosage: ALTERNATE DAYS / ORAL

REACTIONS (6)
  - Haematochezia [None]
  - Rectal haemorrhage [None]
  - Constipation [None]
  - Flatulence [None]
  - Drug administration error [None]
  - Drug prescribing error [None]
